FAERS Safety Report 8234877-9 (Version None)
Quarter: 2012Q1

REPORT INFORMATION
  Report Type: 
  Country: None (occurrence: None)
  Receive Date: 20120321
  Receipt Date: 20120316
  Transmission Date: 20120608
  Serious: Yes (Other)
  Sender: FDA-Public Use
  Company Number: WAES 1203ESP00038

PATIENT
  Age: 88 Year
  Sex: Female

DRUGS (3)
  1. REPAGLINIDE [Suspect]
     Indication: DIABETES MELLITUS
     Dosage: 1 MG TID PO
     Route: 048
  2. JANUVIA [Suspect]
     Indication: DIABETES MELLITUS
     Dosage: 1 MG/TID PO
     Route: 048
  3. INJ INSULIN GLARGINE [Suspect]
     Indication: DIABETES MELLITUS
     Dosage: 14 IU (INSULIN)/HS  SC
     Route: 058

REACTIONS (8)
  - DEPRESSED LEVEL OF CONSCIOUSNESS [None]
  - VOMITING [None]
  - NEUROLOGICAL DECOMPENSATION [None]
  - ABASIA [None]
  - HYPOGLYCAEMIA [None]
  - MUSCULAR WEAKNESS [None]
  - DIET REFUSAL [None]
  - HYPOTENSION [None]
